FAERS Safety Report 5262466-7 (Version None)
Quarter: 2007Q1

REPORT INFORMATION
  Report Type: 
  Country: None (occurrence: None)
  Receive Date: 20061208
  Receipt Date: 20050323
  Transmission Date: 20070707
  Serious: Yes (Hospitalization)
  Sender: FDA-Public Use
  Company Number: 2005UW04613

PATIENT
  Age: 72 Year
  Sex: Male

DRUGS (4)
  1. CRESTOR [Suspect]
     Dosage: 10 MG PO
     Route: 048
     Dates: start: 20040901
  2. OMEPRAZOLE [Suspect]
     Dosage: 20 MG PO
     Route: 048
  3. METAMUCIL [Concomitant]
  4. MECLIZINE [Concomitant]

REACTIONS (1)
  - PANCREATITIS ACUTE [None]
